FAERS Safety Report 8018073-6 (Version None)
Quarter: 2012Q1

REPORT INFORMATION
  Report Type: 
  Country: None (occurrence: None)
  Receive Date: 20120103
  Receipt Date: 20111223
  Transmission Date: 20120608
  Serious: Yes (Life-Threatening, Hospitalization)
  Sender: FDA-Public Use
  Company Number: ES-JNJFOC-20111206125

PATIENT
  Sex: Female
  Weight: 50 kg

DRUGS (2)
  1. PALIPERIDONE [Suspect]
     Indication: SCHIZOPHRENIA
     Dates: start: 20110810
  2. LORAZEPAM [Concomitant]
     Indication: ILL-DEFINED DISORDER
     Route: 065
     Dates: end: 20111117

REACTIONS (1)
  - SUICIDAL IDEATION [None]
